FAERS Safety Report 18671467 (Version 2)
Quarter: 2022Q1

REPORT INFORMATION
  Report Type: Spontaneous
  Country: US (occurrence: US)
  Receive Date: 20201228
  Receipt Date: 20220330
  Transmission Date: 20220423
  Serious: No
  Sender: FDA-Public Use
  Company Number: US-PFIZER INC-2020505826

PATIENT
  Age: 76 Year
  Sex: Female
  Weight: 72.57 kg

DRUGS (1)
  1. IBRANCE [Suspect]
     Active Substance: PALBOCICLIB
     Indication: Breast cancer metastatic
     Dosage: 100 MG, CYCLIC (ONCE A DAY BY MOUTH FOR THREE WEEKS, OFF FOR A WEEK/21 CAPSULES)
     Route: 048
     Dates: start: 20201001

REACTIONS (5)
  - Pruritus [Recovering/Resolving]
  - Blister [Recovering/Resolving]
  - Rash [Recovering/Resolving]
  - Alopecia [Not Recovered/Not Resolved]
  - Dry skin [Recovered/Resolved]

NARRATIVE: CASE EVENT DATE: 20200101
